FAERS Safety Report 7715437-2 (Version None)
Quarter: 2011Q3

REPORT INFORMATION
  Report Type: 
  Country: None (occurrence: None)
  Receive Date: 20110829
  Receipt Date: 20110819
  Transmission Date: 20111222
  Serious: Yes (Other)
  Sender: FDA-Public Use
  Company Number: BR-JNJFOC-20110810083

PATIENT
  Age: 66 Year
  Sex: Female

DRUGS (2)
  1. REMICADE [Suspect]
     Indication: CROHN'S DISEASE
     Route: 042
     Dates: start: 20110201
  2. REMICADE [Suspect]
     Route: 042
     Dates: start: 20080911

REACTIONS (8)
  - BLOOD PRESSURE DECREASED [None]
  - MALAISE [None]
  - PAIN [None]
  - INFUSION RELATED REACTION [None]
  - PALLOR [None]
  - CHEST DISCOMFORT [None]
  - DYSSTASIA [None]
  - ERYTHEMA [None]
